FAERS Safety Report 7072527-8 (Version None)
Quarter: 2010Q4

REPORT INFORMATION
  Report Type: 
  Country: None (occurrence: None)
  Receive Date: 20101029
  Receipt Date: 20100205
  Transmission Date: 20110411
  Serious: No
  Sender: FDA-Public Use
  Company Number: A0843260A

PATIENT
  Age: 80 Year
  Sex: Male

DRUGS (9)
  1. ADVAIR DISKUS 100/50 [Suspect]
     Indication: CHRONIC OBSTRUCTIVE PULMONARY DISEASE
     Dosage: 2PUFF TWICE PER DAY
     Route: 055
     Dates: start: 20100108
  2. ALBUTEROL [Concomitant]
  3. OXYGEN [Concomitant]
  4. CLARITIN [Concomitant]
  5. PREDNISONE [Concomitant]
  6. SINGULAIR [Concomitant]
  7. TERAZOSIN HCL [Concomitant]
  8. COMBIVENT [Concomitant]
  9. IRON [Concomitant]

REACTIONS (5)
  - DRUG INEFFECTIVE [None]
  - EXPIRED DRUG ADMINISTERED [None]
  - HEART RATE DECREASED [None]
  - HEART RATE INCREASED [None]
  - OVERDOSE [None]
